FAERS Safety Report 4289535-2 (Version None)
Quarter: 2004Q1

REPORT INFORMATION
  Report Type: 
  Country: None (occurrence: None)
  Receive Date: 20040126
  Receipt Date: 20031119
  Transmission Date: 20041129
  Serious: No
  Sender: FDA-Public Use
  Company Number: USA030948356

PATIENT
  Age: 87 Year
  Sex: Female
  Weight: 52 kg

DRUGS (9)
  1. FORTEO [Suspect]
     Indication: OSTEOPOROSIS
     Dosage: 20 UG/DAY
     Dates: start: 20030913
  2. CALCIUM [Concomitant]
  3. ACIPHEX [Concomitant]
  4. LASIX [Concomitant]
  5. POTASSIUM [Concomitant]
  6. IRON SUPPLEMENT [Concomitant]
  7. OSCAL (CALCIUM CARBONATE) [Concomitant]
  8. VITAMIN D [Concomitant]
  9. ZINC SULFATE [Concomitant]

REACTIONS (5)
  - BONE PAIN [None]
  - HEADACHE [None]
  - NAUSEA [None]
  - NECK PAIN [None]
  - PAIN IN EXTREMITY [None]
